FAERS Safety Report 10204353 (Version 1)
Quarter: 2014Q2

REPORT INFORMATION
  Report Type: Report from Study
  Country: US (occurrence: US)
  Receive Date: 20140529
  Receipt Date: 20140529
  Transmission Date: 20141212
  Serious: Yes (Hospitalization)
  Sender: FDA-Public Use
  Company Number: US-ASTRAZENECA-2014SE35697

PATIENT
  Age: 53 Year
  Sex: Female
  Weight: 77.1 kg

DRUGS (17)
  1. PRILOSEC [Suspect]
     Indication: GASTROOESOPHAGEAL REFLUX DISEASE
     Route: 048
     Dates: start: 2014
  2. PRILOSEC [Suspect]
     Indication: GASTROOESOPHAGEAL REFLUX DISEASE
     Dosage: OCCASIONALLY SHE TAKES 2 PRILOSCE CAPSULES
     Route: 048
  3. XYLOCAINE [Suspect]
     Indication: GLAUCOMA
     Dosage: 0.05% ONE GTT BILATE HS
     Route: 047
     Dates: start: 2011
  4. NEXIUM [Suspect]
     Indication: GASTROOESOPHAGEAL REFLUX DISEASE
     Route: 048
     Dates: start: 2001
  5. NEXIUM [Suspect]
     Indication: GASTROOESOPHAGEAL REFLUX DISEASE
     Route: 048
     Dates: start: 2012, end: 201402
  6. PROPRANOLOL [Concomitant]
     Indication: CARDIAC DISORDER
     Route: 048
     Dates: start: 201401
  7. ZOLOFT [Concomitant]
     Indication: DEPRESSION
     Route: 048
     Dates: start: 2012
  8. GABAPENTIN [Concomitant]
     Indication: FIBROMYALGIA
     Dosage: 300 MG AM/600MGHS DAILY
     Route: 048
     Dates: start: 2007
  9. SOMETHING FOR BLOOD PRESSURE [Concomitant]
     Indication: BLOOD PRESSURE
     Route: 048
     Dates: start: 2010
  10. BARIATRIC MULTIVITAMINS [Concomitant]
     Indication: SUPPLEMENTATION THERAPY
     Dosage: 1 DAILY
     Route: 048
  11. BARIATRIC B 12 [Concomitant]
     Indication: SUPPLEMENTATION THERAPY
     Dosage: 1 DAILY
     Route: 048
  12. BARIATRIC IRON [Concomitant]
     Indication: SUPPLEMENTATION THERAPY
     Dosage: DAILY
     Route: 048
  13. CALCIUM WITH VIT D [Concomitant]
     Indication: SUPPLEMENTATION THERAPY
     Route: 048
  14. MAGNESIUM [Concomitant]
     Indication: SUPPLEMENTATION THERAPY
     Route: 048
  15. BIOTIN [Concomitant]
     Indication: HAIR DISORDER
     Route: 048
  16. BIOTIN [Concomitant]
     Indication: NAIL DISORDER
     Route: 048
  17. AMBIEN [Concomitant]
     Indication: SLEEP DISORDER
     Route: 048
     Dates: start: 2011

REACTIONS (7)
  - Hepatic enzyme increased [Unknown]
  - Chest discomfort [Unknown]
  - Arthritis [Unknown]
  - Fibromyalgia [Unknown]
  - Hypertension [Unknown]
  - Off label use [Unknown]
  - Drug ineffective [Unknown]
